FAERS Safety Report 22955447 (Version 2)
Quarter: 2023Q4

REPORT INFORMATION
  Report Type: Spontaneous
  Country: SE (occurrence: SE)
  Receive Date: 20230918
  Receipt Date: 20231115
  Transmission Date: 20240110
  Serious: Yes (Death, Other)
  Sender: FDA-Public Use
  Company Number: SE-AURINIA PHARMACEUTICALS INC.-AUR-004246

PATIENT

DRUGS (32)
  1. LUPKYNIS [Suspect]
     Active Substance: VOCLOSPORIN
     Indication: Product used for unknown indication
     Dosage: 15.8 MILLIGRAM, BID
     Route: 048
     Dates: start: 20230810
  2. ENALAPRIL [Concomitant]
     Active Substance: ENALAPRIL
     Indication: Product used for unknown indication
     Dosage: 2.5 MILLIGRAM, QD
     Route: 048
  3. ENALAPRILMALEAT ALTERNOVA [Concomitant]
     Indication: Product used for unknown indication
     Dosage: 2.5 MILLIGRAM
     Route: 048
  4. OXYCODONE HYDROCHLORIDE [Concomitant]
     Active Substance: OXYCODONE HYDROCHLORIDE
     Indication: Product used for unknown indication
     Dosage: 5 MILLIGRAM, PRN
     Route: 048
  5. VALACYCLOVIR HYDROCHLORIDE [Concomitant]
     Active Substance: VALACYCLOVIR HYDROCHLORIDE
     Indication: Product used for unknown indication
     Dosage: 500 MILLIGRAM, BID
     Route: 048
  6. ATOVAQUONE [Concomitant]
     Active Substance: ATOVAQUONE
     Indication: Product used for unknown indication
     Dosage: 150 MILLIGRAM PER MILLILITRE
     Route: 048
  7. POLYETHYLENE GLYCOL 3350\POTASSIUM CHLORIDE\SODIUM BICARBONATE\SODIUM [Concomitant]
     Active Substance: POLYETHYLENE GLYCOL 3350\POTASSIUM CHLORIDE\SODIUM BICARBONATE\SODIUM CHLORIDE
     Indication: Product used for unknown indication
     Dosage: 1 AS NEEDED
     Route: 048
  8. ARIXTRA [Concomitant]
     Active Substance: FONDAPARINUX SODIUM
     Indication: Product used for unknown indication
     Dosage: UNK
     Route: 048
  9. ARIXTRA [Concomitant]
     Active Substance: FONDAPARINUX SODIUM
     Dosage: 1 (DF),QD
  10. ELIQUIS [Concomitant]
     Active Substance: APIXABAN
     Indication: Product used for unknown indication
     Dosage: 2.5 MILLIGRAM
     Route: 048
  11. ELIQUIS [Concomitant]
     Active Substance: APIXABAN
     Dosage: 2.5
     Route: 048
  12. CEFIDEROCOL SULFATE TOSYLATE [Concomitant]
     Active Substance: CEFIDEROCOL SULFATE TOSYLATE
     Indication: Product used for unknown indication
     Dosage: 2 GRAM, TID
     Route: 042
  13. CEFIDEROCOL SULFATE TOSYLATE [Concomitant]
     Active Substance: CEFIDEROCOL SULFATE TOSYLATE
     Dosage: 2 GRAM, TID
     Route: 048
  14. BETAPRED [Concomitant]
     Active Substance: BETAMETHASONE SODIUM PHOSPHATE
     Indication: Product used for unknown indication
     Dosage: 4 MILLIGRAM PER MILLILITRE
  15. AMIKACIN [Concomitant]
     Active Substance: AMIKACIN
     Indication: Product used for unknown indication
     Dosage: 250 MILLIGRAM PER MILLILITRE
  16. SODIUM BICARBONATE [Concomitant]
     Active Substance: SODIUM BICARBONATE
     Indication: Product used for unknown indication
     Dosage: 1 GRAM, TID
     Route: 048
  17. PREDNISOLONE [Concomitant]
     Active Substance: PREDNISOLONE
     Indication: Product used for unknown indication
     Dosage: 40 MILLIGRAM, QD
     Route: 048
  18. PANTOPRAZOLE [Concomitant]
     Active Substance: PANTOPRAZOLE
     Indication: Product used for unknown indication
     Dosage: 40 MILLIGRAM, BID
     Route: 048
  19. NOVORAPID [Concomitant]
     Active Substance: INSULIN ASPART
     Indication: Product used for unknown indication
     Dosage: 2 INTERNATIONAL UNIT, PRN
     Route: 058
  20. NOVORAPID [Concomitant]
     Active Substance: INSULIN ASPART
     Dosage: 2 INTERNATIONAL UNIT, AS NEEDED
  21. NYSTATIN [Concomitant]
     Active Substance: NYSTATIN
     Indication: Product used for unknown indication
     Dosage: 100000 IE/ML
     Route: 048
  22. FUROSEMID ACCORD [Concomitant]
     Indication: Product used for unknown indication
     Dosage: 10 MILLIGRAM PER MILLILITRE
     Route: 042
  23. LINEZOLID [Concomitant]
     Active Substance: LINEZOLID
     Indication: Product used for unknown indication
     Dosage: 2 MILLIGRAM PER MILLILITRE
     Route: 042
  24. LINEZOLID [Concomitant]
     Active Substance: LINEZOLID
     Dosage: 600 MILLIGRAM, BID
     Route: 048
  25. BISOPROLOL [Concomitant]
     Active Substance: BISOPROLOL\BISOPROLOL FUMARATE
     Indication: Product used for unknown indication
     Dosage: 5 MILLIGRAM, QD
     Route: 048
  26. LIDOKAIN [LIDOCAINE HYDROCHLORIDE] [Concomitant]
     Indication: Product used for unknown indication
     Dosage: 1 MILLILITER, PRN
     Route: 048
  27. KIOVIG [Concomitant]
     Active Substance: HUMAN IMMUNOGLOBULIN G
     Indication: Product used for unknown indication
     Dosage: 100 MILLIGRAM PER MILLILITRE
     Route: 042
  28. RINGER-ACETAT BAXTER VIAFLO [Concomitant]
     Indication: Product used for unknown indication
     Dosage: 0.3 MILLIGRAM PER MILLILITRE
     Route: 042
  29. HYDROXYCHLOROQUINE [Concomitant]
     Active Substance: HYDROXYCHLOROQUINE
     Indication: Product used for unknown indication
     Dosage: 200 MILLIGRAM
     Route: 048
  30. MEROPENEM [Concomitant]
     Active Substance: MEROPENEM
     Indication: Product used for unknown indication
     Dosage: 500 MG
     Route: 042
  31. MYCOPHENOLATE MOFETIL [Concomitant]
     Active Substance: MYCOPHENOLATE MOFETIL
     Indication: Product used for unknown indication
     Dosage: 1000 MILLIGRAM, BID
     Route: 048
  32. ZOPICLONE [Concomitant]
     Active Substance: ZOPICLONE
     Indication: Product used for unknown indication
     Dosage: 7.5 MILLIGRAM, QD
     Route: 048

REACTIONS (1)
  - Sepsis [Fatal]

NARRATIVE: CASE EVENT DATE: 20230822
